FAERS Safety Report 4387149-7 (Version None)
Quarter: 2004Q2

REPORT INFORMATION
  Report Type: 
  Country: None (occurrence: None)
  Receive Date: 20040630
  Receipt Date: 20040315
  Transmission Date: 20050107
  Serious: No
  Sender: FDA-Public Use
  Company Number: US-GLAXOSMITHKLINE-A0502853A

PATIENT
  Age: 65 Year
  Sex: Female

DRUGS (5)
  1. ADVAIR HFA [Suspect]
     Indication: SARCOIDOSIS
     Dosage: 1PUFF TWICE PER DAY
     Route: 055
     Dates: start: 20040301
  2. DIOVAN HCT [Concomitant]
  3. MULTIVITAMIN [Concomitant]
  4. VIOXX [Concomitant]
  5. CALCITRATE [Concomitant]

REACTIONS (1)
  - VISION BLURRED [None]
